FAERS Safety Report 7365920-7 (Version None)
Quarter: 2011Q1

REPORT INFORMATION
  Report Type: 
  Country: None (occurrence: None)
  Receive Date: 20110316
  Receipt Date: 20110316
  Transmission Date: 20110831
  Serious: Yes (Hospitalization)
  Sender: FDA-Public Use
  Company Number: None

PATIENT
  Sex: Male
  Weight: 105 kg

DRUGS (4)
  1. VINCRISTINE SULFATE [Suspect]
     Dosage: 2 MG
     Dates: end: 20110302
  2. L-ASPARAGINASE [Suspect]
     Dosage: 52850 MG
     Dates: end: 20110302
  3. DEXAMETHASONE [Suspect]
     Dosage: 190 MG
     Dates: end: 20110301
  4. METHOTREXATE [Suspect]
     Dosage: 190 MG
     Dates: end: 20110301

REACTIONS (2)
  - DIZZINESS [None]
  - BLOOD GLUCOSE INCREASED [None]
